FAERS Safety Report 12764422 (Version 2)
Quarter: 2016Q4

REPORT INFORMATION
  Report Type: Report from Study
  Country: CN (occurrence: CN)
  Receive Date: 20160920
  Receipt Date: 20161003
  Transmission Date: 20170207
  Serious: Yes (Hospitalization, Other)
  Sender: FDA-Public Use
  Company Number: CN-GLAXOSMITHKLINE-CN2016135599

PATIENT
  Age: 65 Year
  Sex: Male

DRUGS (5)
  1. DICLOFENAC DIETHYLAMINE EMULGEL [Concomitant]
     Indication: GOUTY ARTHRITIS
     Dates: start: 20160919, end: 20160926
  2. TRADITIONAL CHINESE MEDICINE [Concomitant]
     Active Substance: HERBALS
     Indication: RENAL IMPAIRMENT
     Dates: start: 20160915, end: 20160926
  3. PREDNISONE ACETATE TABLETS [Concomitant]
     Indication: GOUTY ARTHRITIS
     Dates: start: 20160919, end: 20160924
  4. FLUTICASONE FUROATE + VILANTEROL TRIFENATATE [Suspect]
     Active Substance: FLUTICASONE FUROATE\VILANTEROL TRIFENATATE
     Indication: CHRONIC OBSTRUCTIVE PULMONARY DISEASE
     Dosage: UNK, QD
     Route: 055
     Dates: start: 20160408
  5. CEFOPERAZONE SODIUM AND TAZOBACTAM [Concomitant]
     Indication: PNEUMONIA
     Dosage: 2 G, BID
     Dates: start: 20160914, end: 20160926

REACTIONS (3)
  - Pneumonia [Recovered/Resolved]
  - Cor pulmonale [Recovered/Resolved]
  - Chronic obstructive pulmonary disease [Recovered/Resolved]

NARRATIVE: CASE EVENT DATE: 20160914
